FAERS Safety Report 21590721 (Version 1)
Quarter: 2022Q4

REPORT INFORMATION
  Report Type: Report from Study
  Country: US (occurrence: US)
  Receive Date: 20221114
  Receipt Date: 20221114
  Transmission Date: 20230113
  Serious: No
  Sender: FDA-Public Use
  Company Number: US-ABBVIE-4196419

PATIENT
  Sex: Male

DRUGS (1)
  1. VENCLEXTA [Suspect]
     Active Substance: VENETOCLAX
     Indication: Acute myeloid leukaemia
     Route: 048
     Dates: start: 202109

REACTIONS (6)
  - Diarrhoea [Unknown]
  - Peripheral swelling [Unknown]
  - Faecaloma [Unknown]
  - Constipation [Unknown]
  - Restless legs syndrome [Unknown]
  - Blister [Unknown]
